FAERS Safety Report 7967593-9 (Version None)
Quarter: 2011Q4

REPORT INFORMATION
  Report Type: 
  Country: None (occurrence: None)
  Receive Date: 20111209
  Receipt Date: 20111202
  Transmission Date: 20120403
  Serious: Yes (Hospitalization)
  Sender: FDA-Public Use
  Company Number: US-B.I. PHARMACEUTICALS,INC./RIDGEFIELD-2011-BP-15864BP

PATIENT
  Sex: Female

DRUGS (4)
  1. NORVASC [Concomitant]
     Indication: HYPERTENSION
  2. SOTALOL HCL [Concomitant]
     Indication: HYPERTENSION
     Dates: start: 20110613
  3. PRADAXA [Suspect]
     Indication: ATRIAL FIBRILLATION
     Dosage: 300 MG
     Route: 048
     Dates: start: 20110509
  4. COZAAR [Concomitant]
     Indication: HYPERTENSION

REACTIONS (4)
  - DIARRHOEA [None]
  - MELAENA [None]
  - HEART RATE INCREASED [None]
  - RED BLOOD CELL COUNT DECREASED [None]
